FAERS Safety Report 13988699 (Version 1)
Quarter: 2017Q3

REPORT INFORMATION
  Report Type: Spontaneous
  Country: US (occurrence: US)
  Receive Date: 20170919
  Receipt Date: 20170919
  Transmission Date: 20171128
  Serious: Yes (Other)
  Sender: FDA-Public Use
  Company Number: US-VIFOR (INTERNATIONAL) INC.-VIT-2017-09437

PATIENT
  Sex: Male

DRUGS (10)
  1. KAYEXALATE [Concomitant]
     Active Substance: SODIUM POLYSTYRENE SULFONATE
  2. CARVEDILOL. [Concomitant]
     Active Substance: CARVEDILOL
  3. BIDIL [Concomitant]
     Active Substance: HYDRALAZINE HYDROCHLORIDE\ISOSORBIDE DINITRATE
  4. VELTASSA [Suspect]
     Active Substance: PATIROMER
     Indication: HYPERKALAEMIA
     Route: 048
     Dates: start: 20160416
  5. LASIX [Concomitant]
     Active Substance: FUROSEMIDE
  6. ASPIR-LOW [Concomitant]
     Active Substance: ASPIRIN
  7. COLECALCIFEROL [Concomitant]
     Active Substance: CHOLECALCIFEROL
  8. PROCARDIA XL [Concomitant]
     Active Substance: NIFEDIPINE
  9. ATORVASTATIN CALCIUM. [Concomitant]
     Active Substance: ATORVASTATIN CALCIUM
  10. MICARDIS [Concomitant]
     Active Substance: TELMISARTAN

REACTIONS (1)
  - Dialysis [Unknown]
